FAERS Safety Report 4695220-5 (Version None)
Quarter: 2005Q2

REPORT INFORMATION
  Report Type: 
  Country: None (occurrence: None)
  Receive Date: 20050614
  Receipt Date: 20050113
  Transmission Date: 20051028
  Serious: No
  Sender: FDA-Public Use
  Company Number: USA050187730

PATIENT
  Age: 55 Year
  Sex: Male

DRUGS (5)
  1. CIALIS [Suspect]
     Indication: ERECTILE DYSFUNCTION
     Dosage: 20 MG AS NEEDED
     Dates: start: 20041101
  2. VERAPAMIL [Concomitant]
  3. AMITRIPTYLINE HCL [Concomitant]
  4. KLONOPIN [Concomitant]
  5. VITAMIN B COMPLEX WITH IRON [Concomitant]

REACTIONS (7)
  - DRUG INEFFECTIVE [None]
  - DYSPEPSIA [None]
  - GASTROOESOPHAGEAL REFLUX DISEASE [None]
  - HEADACHE [None]
  - MALAISE [None]
  - MIGRAINE WITH AURA [None]
  - VISUAL DISTURBANCE [None]
